FAERS Safety Report 5128910-0 (Version None)
Quarter: 2006Q4

REPORT INFORMATION
  Report Type: 
  Country: None (occurrence: None)
  Receive Date: 20061011
  Receipt Date: 20060922
  Transmission Date: 20070319
  Serious: Yes (Hospitalization, Other)
  Sender: FDA-Public Use
  Company Number: US200608005304

PATIENT
  Age: 52 Year
  Sex: Male

DRUGS (4)
  1. HUMALOG [Suspect]
     Indication: DIABETES MELLITUS INSULIN-DEPENDENT
     Dosage: 30 UNITS AT DINNER,
  2. CYMBALTA [Suspect]
     Indication: DEPRESSION
  3. METFORMIN HCL [Concomitant]
  4. LANTUS [Concomitant]

REACTIONS (15)
  - ALCOHOLIC [None]
  - AMNESIA [None]
  - BLOOD GLUCOSE FLUCTUATION [None]
  - DEPRESSION [None]
  - DIABETIC COMA [None]
  - DRUG ABUSER [None]
  - FEELING ABNORMAL [None]
  - INFLUENZA [None]
  - LOSS OF CONSCIOUSNESS [None]
  - MEDICAL DEVICE COMPLICATION [None]
  - PAIN [None]
  - PHARMACEUTICAL PRODUCT COMPLAINT [None]
  - POLYARTHRITIS [None]
  - VISUAL DISTURBANCE [None]
  - WRONG TECHNIQUE IN DRUG USAGE PROCESS [None]
